FAERS Safety Report 7344819-6 (Version None)
Quarter: 2011Q1

REPORT INFORMATION
  Report Type: 
  Country: None (occurrence: None)
  Receive Date: 20110310
  Receipt Date: 20110301
  Transmission Date: 20110831
  Serious: Yes (Hospitalization, Other)
  Sender: FDA-Public Use
  Company Number: JP-BAYER-2011-009860

PATIENT
  Sex: Male
  Weight: 50 kg

DRUGS (2)
  1. NEXAVAR [Suspect]
     Indication: HEPATIC NEOPLASM MALIGNANT
     Dosage: 200 MG, BID
     Route: 048
     Dates: start: 20101210, end: 20110108
  2. NEXAVAR [Suspect]
     Dosage: DAILY DOSE 600 MG
     Route: 048
     Dates: start: 20110109, end: 20110118

REACTIONS (4)
  - COLITIS [None]
  - VARICES OESOPHAGEAL [None]
  - MELAENA [None]
  - HAEMATEMESIS [None]
